FAERS Safety Report 24179254 (Version 1)
Quarter: 2024Q3

REPORT INFORMATION
  Report Type: Spontaneous
  Country: CN (occurrence: CN)
  Receive Date: 20240806
  Receipt Date: 20240806
  Transmission Date: 20241017
  Serious: Yes (Disabling)
  Sender: PFIZER
  Company Number: CN-TAKEDA-2024TUS077259

PATIENT
  Age: 65 Year
  Sex: Female
  Weight: 56.5 kg

DRUGS (5)
  1. PANTOPRAZOLE SODIUM [Suspect]
     Active Substance: PANTOPRAZOLE SODIUM
     Indication: Acute coronary syndrome
     Dosage: 40 MILLIGRAM, QD
     Route: 048
     Dates: start: 20210108, end: 20210120
  2. BRILINTA [Suspect]
     Active Substance: TICAGRELOR
     Indication: Acute coronary syndrome
     Dosage: 90 MILLIGRAM, BID
     Route: 048
     Dates: start: 20210108, end: 20210120
  3. ROSUVASTATIN CALCIUM [Suspect]
     Active Substance: ROSUVASTATIN CALCIUM
     Indication: Acute coronary syndrome
     Dosage: 10 MILLIGRAM, QD
     Route: 048
     Dates: start: 20210108, end: 20210117
  4. HEPARIN CALCIUM [Concomitant]
     Active Substance: HEPARIN CALCIUM
     Indication: Acute coronary syndrome
     Dosage: UNK UNK, BID
     Route: 058
     Dates: start: 20210108, end: 20210113
  5. ASPIRIN [Concomitant]
     Active Substance: ASPIRIN
     Indication: Acute coronary syndrome
     Dosage: 0.1 GRAM, QD,ENTERIC COATED TABLET
     Route: 048
     Dates: start: 20210108, end: 20210120

REACTIONS (1)
  - Hepatic function abnormal [Recovering/Resolving]

NARRATIVE: CASE EVENT DATE: 20210115
